FAERS Safety Report 7982460-2 (Version None)
Quarter: 2011Q4

REPORT INFORMATION
  Report Type: 
  Country: None (occurrence: None)
  Receive Date: 20111215
  Receipt Date: 20111210
  Transmission Date: 20120403
  Serious: Yes (Hospitalization, Other)
  Sender: FDA-Public Use
  Company Number: PHHY2010CA69696

PATIENT
  Sex: Female
  Weight: 56.4 kg

DRUGS (4)
  1. TRAZODONE HCL [Concomitant]
     Dosage: 500 MG, QD
  2. ZOLEDRONOC ACID [Suspect]
     Indication: OSTEOPOROSIS
     Dosage: 5 MG/YEARLY
     Route: 042
     Dates: start: 20100312
  3. VITAMIN D [Concomitant]
     Dosage: 2000 IU, DAILY
     Dates: start: 20080101
  4. CALCIUM [Concomitant]
     Dosage: 1200 MG, DAILY
     Dates: start: 20080101

REACTIONS (8)
  - LIGAMENT INJURY [None]
  - RADIUS FRACTURE [None]
  - SKELETAL INJURY [None]
  - SOFT TISSUE INJURY [None]
  - CELLULITIS [None]
  - JOINT EFFUSION [None]
  - FALL [None]
  - MALAISE [None]
